FAERS Safety Report 7478763-0 (Version None)
Quarter: 2011Q2

REPORT INFORMATION
  Report Type: 
  Country: None (occurrence: None)
  Receive Date: 20110513
  Receipt Date: 20090907
  Transmission Date: 20111010
  Serious: Yes (Hospitalization)
  Sender: FDA-Public Use
  Company Number: JP-ROCHE-574683

PATIENT
  Sex: Female
  Weight: 53 kg

DRUGS (26)
  1. RHEUMATREX [Suspect]
     Dosage: DOSE DECREASED
     Route: 048
     Dates: start: 20080501, end: 20080602
  2. CELECOXIB [Concomitant]
     Dosage: DRUG NAME: CELECOX
     Route: 048
  3. PURSENNID [Concomitant]
     Route: 048
  4. ACTEMRA [Suspect]
     Route: 041
     Dates: start: 20081215, end: 20081215
  5. RHEUMATREX [Suspect]
     Indication: RHEUMATOID ARTHRITIS
     Dosage: DOSE INCREASED
     Route: 048
     Dates: end: 20080430
  6. PREDNISOLONE [Suspect]
     Indication: RHEUMATOID ARTHRITIS
     Route: 048
  7. EVISTA [Concomitant]
     Route: 048
  8. ACTEMRA [Suspect]
     Route: 041
     Dates: start: 20080630, end: 20080630
  9. ACTEMRA [Suspect]
     Route: 041
     Dates: start: 20081020, end: 20081020
  10. ACTEMRA [Suspect]
     Route: 041
     Dates: start: 20081117, end: 20081117
  11. FOLIC ACID [Concomitant]
     Dosage: FORM: ORAL FORMULATION (NOT OTHERWISE SPECIFIED)
     Route: 048
     Dates: end: 20080817
  12. GASCON [Concomitant]
     Dosage: DRUG REPORTED: GASCON (DIMETHICONE)
     Route: 048
  13. ACTEMRA [Suspect]
     Route: 041
     Dates: start: 20080922, end: 20080922
  14. ACTEMRA [Suspect]
     Route: 041
     Dates: start: 20090119
  15. ACTEMRA [Suspect]
     Route: 041
     Dates: start: 20080818, end: 20080818
  16. LENDORMIN [Concomitant]
     Dosage: DRUG REPORTED: LENDORMIN D(BROTIZOLAM), TAKEN AS NEEDED. TAKEN FOR SLEEPLESSNESS
     Route: 048
  17. ULCERLMIN [Concomitant]
     Dosage: FORM: ORAL FORMULATION (NOT OTHERWISE SPECIFIED)
     Route: 048
  18. ALFAROL [Concomitant]
     Route: 048
  19. CANDESARTAN CILEXETIL [Concomitant]
     Dosage: DRUG REPORTED: BLOPRESS (CANDESARTAN CILEXETIL)
     Route: 048
  20. FERRUM [Concomitant]
     Dosage: FORM: SUSTAINED RELEASE CAPSULE
     Route: 048
     Dates: end: 20080804
  21. GASTER D [Concomitant]
     Route: 048
  22. CARTEOLOL HYDROCHLORIDE [Concomitant]
     Route: 048
  23. ZOLPIDEM [Concomitant]
     Dosage: DRUG REPORTED: MYSLEE (ZOLPIDEM TARTRATE), TAKEN AS NEEDED. TAKEN FOR SLEEPLESSNESS
     Route: 048
  24. ACTEMRA [Suspect]
     Indication: RHEUMATOID ARTHRITIS
     Route: 041
     Dates: start: 20080602, end: 20080602
  25. RHEUMATREX [Suspect]
     Route: 048
     Dates: start: 20080616, end: 20080817
  26. CIBENOL [Concomitant]
     Route: 048

REACTIONS (4)
  - ATRIAL FIBRILLATION [None]
  - UPPER RESPIRATORY TRACT INFLAMMATION [None]
  - NEUTROPENIA [None]
  - CELLULITIS [None]
